FAERS Safety Report 23293168 (Version 1)
Quarter: 2023Q4

REPORT INFORMATION
  Report Type: Spontaneous
  Country: EC (occurrence: EC)
  Receive Date: 20231213
  Receipt Date: 20231213
  Transmission Date: 20240109
  Serious: Yes (Death, Other)
  Sender: FDA-Public Use
  Company Number: EC-PFIZER INC-PV202300199313

PATIENT
  Age: 11 Year
  Sex: Female

DRUGS (1)
  1. SOMATROPIN [Suspect]
     Active Substance: SOMATROPIN
     Dosage: UNK
     Route: 058

REACTIONS (3)
  - Cardiac arrest [Fatal]
  - Pneumonia [Unknown]
  - Systemic infection [Unknown]

NARRATIVE: CASE EVENT DATE: 20231129
